FAERS Safety Report 7805445-5 (Version None)
Quarter: 2011Q4

REPORT INFORMATION
  Report Type: 
  Country: None (occurrence: None)
  Receive Date: 20111010
  Receipt Date: 20110929
  Transmission Date: 20120403
  Serious: Yes (Hospitalization)
  Sender: FDA-Public Use
  Company Number: US-ASTRAZENECA-2011SE42129

PATIENT
  Age: 40 Year
  Sex: Female
  Weight: 81.6 kg

DRUGS (4)
  1. COUMADIN [Concomitant]
  2. SEROQUEL [Suspect]
     Route: 048
  3. VERAPAMIL [Concomitant]
  4. SEROQUEL [Suspect]
     Indication: SCHIZOPHRENIA
     Route: 048

REACTIONS (2)
  - DRUG DOSE OMISSION [None]
  - FEELING ABNORMAL [None]
